FAERS Safety Report 11513247 (Version 1)
Quarter: 2015Q3

REPORT INFORMATION
  Report Type: Spontaneous
  Country: US (occurrence: None)
  Receive Date: 20150915
  Receipt Date: 20150915
  Transmission Date: 20151125
  Serious: Yes (Other)
  Sender: FDA-Public Use
  Company Number: None

PATIENT
  Age: 65 Year
  Sex: Female
  Weight: 58.97 kg

DRUGS (4)
  1. RESTASIS 0.05% OPHTH EMULSION 30 0.04ML EACH ALLERGEN INC [Suspect]
     Active Substance: CYCLOSPORINE
     Indication: INFLAMMATION
     Dosage: 1 DROP OU BID TWICE DAILY INTO THE EYE
     Route: 031
     Dates: start: 20150707, end: 20150818
  2. RESTASIS 0.05% OPHTH EMULSION 30 0.04ML EACH ALLERGEN INC [Suspect]
     Active Substance: CYCLOSPORINE
     Indication: DRY EYE
     Dosage: 1 DROP OU BID TWICE DAILY INTO THE EYE
     Route: 031
     Dates: start: 20150707, end: 20150818
  3. HRT [Concomitant]
     Active Substance: UNSPECIFIED INGREDIENT
  4. MULTIPLE VITAMINS WITH MINERALS [Concomitant]

REACTIONS (3)
  - Blepharospasm [None]
  - Insomnia [None]
  - Sinus disorder [None]

NARRATIVE: CASE EVENT DATE: 20150914
